FAERS Safety Report 4646761-8 (Version None)
Quarter: 2005Q2

REPORT INFORMATION
  Report Type: 
  Country: None (occurrence: None)
  Receive Date: 20050425
  Receipt Date: 20050425
  Transmission Date: 20051028
  Serious: Yes (Hospitalization)
  Sender: FDA-Public Use
  Company Number: None

PATIENT
  Age: 80 Year
  Sex: Male
  Weight: 54.4316 kg

DRUGS (2)
  1. WARFARIN      2.5MG [Suspect]
     Indication: ATRIAL FIBRILLATION
     Dosage: 5MG/7.5MG   QD   ORAL
     Route: 048
     Dates: start: 20041129, end: 20050205
  2. AMIODARONE HCL [Concomitant]

REACTIONS (2)
  - EPISTAXIS [None]
  - INTERNATIONAL NORMALISED RATIO INCREASED [None]
